FAERS Safety Report 8157217-2 (Version None)
Quarter: 2012Q1

REPORT INFORMATION
  Report Type: 
  Country: None (occurrence: None)
  Receive Date: 20120222
  Receipt Date: 20120222
  Transmission Date: 20120608
  Serious: Yes (Life-Threatening, Hospitalization)
  Sender: FDA-Public Use
  Company Number: None

PATIENT
  Age: 28 Year
  Sex: Female
  Weight: 65.77 kg

DRUGS (1)
  1. LEVAQUIN [Suspect]
     Indication: PNEUMONIA
     Dates: start: 20111127, end: 20111203

REACTIONS (16)
  - TREMOR [None]
  - FEELING ABNORMAL [None]
  - EXERCISE TOLERANCE DECREASED [None]
  - WEIGHT DECREASED [None]
  - PARAESTHESIA [None]
  - VERTIGO [None]
  - PALPITATIONS [None]
  - POSTURAL ORTHOSTATIC TACHYCARDIA SYNDROME [None]
  - MUSCLE ATROPHY [None]
  - ANXIETY [None]
  - NEUROPATHY PERIPHERAL [None]
  - DIZZINESS [None]
  - HYPERTENSION [None]
  - NAUSEA [None]
  - SUPRAVENTRICULAR TACHYCARDIA [None]
  - SUICIDAL IDEATION [None]
